FAERS Safety Report 7859014-1 (Version None)
Quarter: 2011Q4

REPORT INFORMATION
  Report Type: 
  Country: None (occurrence: None)
  Receive Date: 20111027
  Receipt Date: 20111018
  Transmission Date: 20120403
  Serious: Yes (Other)
  Sender: FDA-Public Use
  Company Number: US-JNJFOC-20111010313

PATIENT
  Age: 78 Year
  Sex: Male
  Weight: 84.5 kg

DRUGS (30)
  1. ACETAMINOPHEN [Concomitant]
     Route: 065
  2. ALLOPURINOL [Concomitant]
     Route: 065
  3. BACLOFEN [Concomitant]
     Route: 065
  4. CLONIDINE [Concomitant]
     Route: 065
  5. METFORMIN HCL [Concomitant]
     Route: 065
  6. GABAPENTIN [Concomitant]
     Route: 065
  7. CINACALCET [Concomitant]
     Route: 065
  8. SIMVASTATIN [Concomitant]
     Route: 065
  9. DOCUSATE [Concomitant]
     Route: 065
  10. ERGOCALCIFEROL [Concomitant]
     Dosage: 5,000 UNITS
     Route: 065
  11. NAPROXEN [Concomitant]
     Route: 065
  12. INSULIN [Concomitant]
     Route: 065
  13. DIPHENHYDRAMINE HCL [Concomitant]
     Route: 065
  14. COLCHICINE [Concomitant]
     Route: 065
  15. VARDENAFIL [Concomitant]
     Route: 065
  16. VITAMINE E [Concomitant]
     Dosage: 100 UNITS
     Route: 065
  17. ASPIRIN [Concomitant]
     Route: 065
  18. OXYCODONE HCL AND ACETAMINOPHEN [Suspect]
     Indication: CONFUSIONAL STATE
     Route: 065
  19. CAPSAICIN [Concomitant]
     Route: 065
  20. FERROUS SULFATE TAB [Concomitant]
     Route: 065
  21. FUROSEMIDE [Concomitant]
     Route: 065
  22. LISINOPRIL [Concomitant]
     Route: 065
  23. CIPROFLOXACIN [Concomitant]
     Indication: URINARY TRACT INFECTION
     Route: 065
  24. CEFTRIAXONE [Concomitant]
     Indication: URINARY TRACT INFECTION
     Route: 065
  25. FINASTERIDE [Concomitant]
     Route: 065
  26. OMEPRAZOLE [Concomitant]
     Route: 065
  27. RANITIDINE [Concomitant]
     Route: 065
  28. TERAZOSIN HCL [Concomitant]
     Route: 065
  29. DESIPRAMINE HCL [Concomitant]
     Route: 065
  30. MORPHINE [Concomitant]
     Indication: POSTOPERATIVE ANALGESIA
     Route: 065

REACTIONS (3)
  - DELIRIUM [None]
  - AGITATION [None]
  - MENTAL STATUS CHANGES [None]
